FAERS Safety Report 11855881 (Version 8)
Quarter: 2017Q2

REPORT INFORMATION
  Report Type: Report from Study
  Country: FR (occurrence: FR)
  Receive Date: 20151221
  Receipt Date: 20170524
  Transmission Date: 20170829
  Serious: Yes (Life-Threatening, Hospitalization, Other)
  Sender: FDA-Public Use
  Company Number: FR-IPSEN BIOPHARMACEUTICALS, INC.-2013-4319

PATIENT
  Age: 12 Year
  Sex: Male
  Weight: 33 kg

DRUGS (8)
  1. INCRELEX [Suspect]
     Active Substance: MECASERMIN
     Route: 058
     Dates: start: 20101026, end: 20101110
  2. INCRELEX [Suspect]
     Active Substance: MECASERMIN
     Indication: NOONAN SYNDROME
     Route: 058
     Dates: start: 20110804, end: 20110819
  3. NORDITROPIN [Concomitant]
     Active Substance: SOMATROPIN
  4. INCRELEX [Suspect]
     Active Substance: MECASERMIN
     Indication: PRIMARY INSULIN LIKE GROWTH FACTOR-1 DEFICIENCY
     Route: 058
     Dates: start: 20101111, end: 20110119
  5. INCRELEX [Suspect]
     Active Substance: MECASERMIN
     Indication: OFF LABEL USE
     Route: 058
     Dates: start: 20110820, end: 20120903
  6. FEMARA [Concomitant]
     Active Substance: LETROZOLE
  7. NORDITROPIN [Concomitant]
     Active Substance: SOMATROPIN
  8. NORDITROPIN [Concomitant]
     Active Substance: SOMATROPIN

REACTIONS (18)
  - Wound dehiscence [Recovered/Resolved]
  - Rhabdomyolysis [Recovered/Resolved]
  - Overdose [Unknown]
  - Necrosis [Unknown]
  - Haematoma [Recovered/Resolved]
  - Device extrusion [Recovered/Resolved]
  - Scoliosis [Recovered/Resolved with Sequelae]
  - Melanocytic naevus [Unknown]
  - Off label use [Unknown]
  - Restrictive pulmonary disease [Unknown]
  - Medical device site haemorrhage [Recovered/Resolved]
  - Shock haemorrhagic [Recovered/Resolved]
  - Pain [Recovered/Resolved]
  - Arthralgia [Recovered/Resolved]
  - Cartilage neoplasm [Recovered/Resolved with Sequelae]
  - Mass [Recovered/Resolved]
  - Disseminated intravascular coagulation [Recovered/Resolved]
  - Condition aggravated [Recovered/Resolved with Sequelae]

NARRATIVE: CASE EVENT DATE: 20110119
